FAERS Safety Report 26121342 (Version 1)
Quarter: 2025Q4

REPORT INFORMATION
  Report Type: Spontaneous
  Country: PR (occurrence: None)
  Receive Date: 20251203
  Receipt Date: 20251203
  Transmission Date: 20260118
  Serious: Yes (Hospitalization)
  Sender: FDA-CTU
  Company Number: None

PATIENT
  Age: 74 Year
  Sex: Female

DRUGS (9)
  1. LENALIDOMIDE [Suspect]
     Active Substance: LENALIDOMIDE
     Indication: Plasma cell myeloma
     Dosage: FREQUENCY : DAILY;?
     Route: 048
     Dates: start: 20251110, end: 20251117
  2. ACETAMINOPHEN\TRAMADOL [Concomitant]
     Active Substance: ACETAMINOPHEN\TRAMADOL
  3. DARZALEX [Concomitant]
     Active Substance: DARATUMUMAB
  4. ACYCLOVIR [Concomitant]
     Active Substance: ACYCLOVIR
  5. DEXAMETHASONE [Concomitant]
     Active Substance: DEXAMETHASONE
  6. MONTELUKAST [Concomitant]
     Active Substance: MONTELUKAST
  7. CALCIUM W/ VIT D [Concomitant]
  8. VITAMIN B12 [Concomitant]
     Active Substance: CYANOCOBALAMIN
  9. LOSARTAN [Concomitant]
     Active Substance: LOSARTAN

REACTIONS (3)
  - Rash [None]
  - Inflammation [None]
  - Cardiovascular disorder [None]

NARRATIVE: CASE EVENT DATE: 20251124
